FAERS Safety Report 4309151-3 (Version None)
Quarter: 2004Q1

REPORT INFORMATION
  Report Type: 
  Country: None (occurrence: None)
  Receive Date: 20040301
  Receipt Date: 20040218
  Transmission Date: 20041129
  Serious: Yes (Other)
  Sender: FDA-Public Use
  Company Number: US-JNJFOC-20031001881

PATIENT
  Age: 46 Year
  Sex: Female
  Weight: 59.4212 kg

DRUGS (3)
  1. REMICADE [Suspect]
     Indication: RHEUMATOID ARTHRITIS
     Dosage: 200 MG, INTRAVENOUS
     Route: 042
     Dates: start: 20030917
  2. ARAVA [Concomitant]
  3. PREDNISONE [Concomitant]

REACTIONS (6)
  - ANGIONEUROTIC OEDEMA [None]
  - HEADACHE [None]
  - JAW DISORDER [None]
  - PAIN IN EXTREMITY [None]
  - SWOLLEN TONGUE [None]
  - URTICARIA [None]
